FAERS Safety Report 6089052-3 (Version None)
Quarter: 2009Q1

REPORT INFORMATION
  Report Type: 
  Country: None (occurrence: None)
  Receive Date: 20090224
  Receipt Date: 20090219
  Transmission Date: 20090719
  Serious: Yes (Other)
  Sender: FDA-Public Use
  Company Number: B0558217A

PATIENT
  Age: 15 Year
  Sex: Male

DRUGS (3)
  1. RELENZA [Suspect]
     Indication: DRUG USE FOR UNKNOWN INDICATION
     Dosage: 10MG TWICE PER DAY
     Route: 055
     Dates: start: 20090116
  2. CALONAL [Concomitant]
     Route: 065
  3. MUCOSTA [Concomitant]
     Route: 048

REACTIONS (2)
  - ABNORMAL BEHAVIOUR [None]
  - LOSS OF CONSCIOUSNESS [None]
